FAERS Safety Report 14145711 (Version 1)
Quarter: 2017Q4

REPORT INFORMATION
  Report Type: Spontaneous
  Country: GB (occurrence: GB)
  Receive Date: 20171031
  Receipt Date: 20171031
  Transmission Date: 20180321
  Serious: Yes (Hospitalization, Other)
  Sender: FDA-Public Use
  Company Number: GB-BAYER-2017-203455

PATIENT
  Age: 66 Year
  Sex: Male
  Weight: 81 kg

DRUGS (5)
  1. ACLIDINIUM BROMIDE. [Concomitant]
     Active Substance: ACLIDINIUM BROMIDE
     Dosage: 322 ?G, BID
     Route: 045
     Dates: start: 20170505
  2. ASPIRIN. [Suspect]
     Active Substance: ASPIRIN
     Indication: DYSPNOEA
     Dosage: UNK
     Route: 048
     Dates: start: 20170407, end: 20171007
  3. SYMBICORT [Concomitant]
     Active Substance: BUDESONIDE\FORMOTEROL FUMARATE DIHYDRATE
     Dosage: 1 DF, BID
     Dates: start: 20170505
  4. IBUPROFEN. [Concomitant]
     Active Substance: IBUPROFEN
  5. VENTOLIN [Concomitant]
     Active Substance: ALBUTEROL SULFATE
     Dosage: UNK UNK, PRN
     Dates: start: 20170505

REACTIONS (2)
  - Gastrointestinal ulcer [Unknown]
  - Gastrointestinal haemorrhage [Recovered/Resolved]

NARRATIVE: CASE EVENT DATE: 2017
